FAERS Safety Report 6200226-0 (Version None)
Quarter: 2009Q2

REPORT INFORMATION
  Report Type: 
  Country: None (occurrence: None)
  Receive Date: 20090522
  Receipt Date: 20090515
  Transmission Date: 20091009
  Serious: Yes (Hospitalization, Other)
  Sender: FDA-Public Use
  Company Number: CH-JNJFOC-20090503323

PATIENT
  Age: 31 Year
  Sex: Female

DRUGS (7)
  1. HALDOL [Suspect]
     Route: 048
  2. HALDOL [Suspect]
     Route: 048
  3. HALDOL [Suspect]
     Indication: SCHIZOPHRENIA
     Route: 048
  4. SEROQUEL [Interacting]
     Route: 048
  5. SEROQUEL [Interacting]
     Route: 048
  6. SEROQUEL [Interacting]
     Indication: DRUG USE FOR UNKNOWN INDICATION
     Route: 048
  7. LORAZEPAM [Concomitant]
     Route: 048

REACTIONS (4)
  - AMENORRHOEA [None]
  - BLOOD PROLACTIN INCREASED [None]
  - DRUG INTERACTION [None]
  - EXTRAPYRAMIDAL DISORDER [None]
